FAERS Safety Report 8227405-5 (Version None)
Quarter: 2012Q1

REPORT INFORMATION
  Report Type: 
  Country: None (occurrence: None)
  Receive Date: 20120322
  Receipt Date: 20120305
  Transmission Date: 20120608
  Serious: Yes (Other)
  Sender: FDA-Public Use
  Company Number: ES-AMGEN-ESPSP2012015018

PATIENT
  Age: 49 Year
  Sex: Male
  Weight: 90 kg

DRUGS (3)
  1. MORPHINE [Concomitant]
     Indication: PAIN
     Dosage: 72 MG, EVERY 72 HOURS
     Route: 062
  2. ENBREL [Suspect]
     Indication: ANKYLOSING SPONDYLITIS
     Dosage: 50 MG, WEEKLY
     Route: 058
     Dates: start: 20110930
  3. ACETAMINOPHEN [Concomitant]
     Indication: PAIN
     Dosage: ON DEMAND
     Route: 048

REACTIONS (1)
  - ARTHRODESIS [None]
